FAERS Safety Report 9112892 (Version 3)
Quarter: 2013Q2

REPORT INFORMATION
  Report Type: Report from Study
  Country: US (occurrence: US)
  Receive Date: 20130211
  Receipt Date: 20130408
  Transmission Date: 20140414
  Serious: Yes (Other)
  Sender: FDA-Public Use
  Company Number: US-ROCHE-1135130

PATIENT
  Sex: Female

DRUGS (5)
  1. TELAPREVIR [Suspect]
     Indication: CHRONIC HEPATITIS C
     Route: 065
     Dates: start: 20120914, end: 20121217
  2. RIBAVIRIN [Suspect]
     Indication: CHRONIC HEPATITIS C
     Route: 065
     Dates: start: 20120914, end: 20130222
  3. PEGASYS [Suspect]
     Indication: CHRONIC HEPATITIS C
     Route: 058
     Dates: start: 20120914, end: 20130222
  4. IMODIUM [Concomitant]
  5. HYDROCODONE BITARTRATE [Concomitant]
     Indication: PAIN MANAGEMENT
     Route: 065

REACTIONS (18)
  - Foot fracture [Unknown]
  - Muscular weakness [Unknown]
  - Gait disturbance [Unknown]
  - Fatigue [Unknown]
  - Back pain [Unknown]
  - Influenza like illness [Recovered/Resolved]
  - Pain [Unknown]
  - Diarrhoea [Recovered/Resolved]
  - Anaemia [Unknown]
  - Drug ineffective [Unknown]
  - Dysuria [Unknown]
  - Urinary tract infection [Unknown]
  - Muscle spasms [Unknown]
  - Nightmare [Unknown]
  - Rash [Unknown]
  - Vomiting [Not Recovered/Not Resolved]
  - Fatigue [Not Recovered/Not Resolved]
  - Dyspepsia [Not Recovered/Not Resolved]
